FAERS Safety Report 23265183 (Version 2)
Quarter: 2025Q1

REPORT INFORMATION
  Report Type: Spontaneous
  Country: US (occurrence: US)
  Receive Date: 20231206
  Receipt Date: 20250102
  Transmission Date: 20250409
  Serious: No
  Sender: CELLTRION
  Company Number: US-CELLTRION INC.-2023US020384

PATIENT

DRUGS (5)
  1. TRUXIMA [Suspect]
     Active Substance: RITUXIMAB-ABBS
     Indication: Waldenstrom^s macroglobulinaemia
     Route: 042
     Dates: start: 20231018
  2. RAMIPRIL [Concomitant]
     Active Substance: RAMIPRIL
  3. DILTIAZEM [Concomitant]
     Active Substance: DILTIAZEM
  4. XARELTO [Concomitant]
     Active Substance: RIVAROXABAN
  5. VITAMINS NOS [Concomitant]
     Active Substance: VITAMINS

REACTIONS (1)
  - Off label use [Unknown]
